FAERS Safety Report 21616220 (Version 2)
Quarter: 2023Q1

REPORT INFORMATION
  Report Type: Spontaneous
  Country: US (occurrence: US)
  Receive Date: 20221118
  Receipt Date: 20230216
  Transmission Date: 20230418
  Serious: No
  Sender: FDA-Public Use
  Company Number: US-BRISTOL-MYERS SQUIBB COMPANY-2022-138685

PATIENT
  Age: 72 Year
  Sex: Female

DRUGS (1)
  1. OPDIVO [Suspect]
     Active Substance: NIVOLUMAB
     Indication: Pancreatic carcinoma
     Dosage: DOSE : 240MG;     FREQ : EVERY 2 WEEKS
     Route: 042

REACTIONS (2)
  - Product leakage [Unknown]
  - Off label use [Unknown]
